FAERS Safety Report 9377473 (Version 1)
Quarter: 2013Q3

REPORT INFORMATION
  Report Type: Report from Study
  Country: NZ (occurrence: NZ)
  Receive Date: 20130701
  Receipt Date: 20130701
  Transmission Date: 20140515
  Serious: Yes (Other)
  Sender: FDA-Public Use
  Company Number: NZ-PFIZER INC-2012271742

PATIENT
  Sex: Male

DRUGS (4)
  1. CHAMPIX [Suspect]
     Dosage: UNK
  2. ACETYLSALICYLIC ACID [Concomitant]
     Dosage: UNK
  3. SIMVASTATIN [Concomitant]
     Dosage: UNK
  4. OMEPRAZOLE [Concomitant]
     Dosage: UNK

REACTIONS (3)
  - Hyperglycaemia [Recovered/Resolved]
  - Gastrooesophageal reflux disease [Unknown]
  - Inguinal hernia [Unknown]
